FAERS Safety Report 24271613 (Version 2)
Quarter: 2024Q4

REPORT INFORMATION
  Report Type: Other
  Country: CA (occurrence: CA)
  Receive Date: 20240902
  Receipt Date: 20241202
  Transmission Date: 20250115
  Serious: Yes (Death, Other)
  Sender: APOTEX
  Company Number: CA-APOTEX-2024AP009664

PATIENT
  Age: 91 Year
  Sex: Male

DRUGS (3)
  1. DASATINIB [Suspect]
     Active Substance: DASATINIB
     Indication: Product used for unknown indication
     Dosage: UNK
     Route: 065
  2. IMATINIB [Suspect]
     Active Substance: IMATINIB
     Indication: Chronic myeloid leukaemia
     Dosage: UNK
     Route: 065
  3. SCEMBLIX [Suspect]
     Active Substance: ASCIMINIB HYDROCHLORIDE
     Indication: Philadelphia positive chronic myeloid leukaemia
     Dosage: 40 MILLIGRAM, BID
     Route: 048

REACTIONS (7)
  - Death [Fatal]
  - Cytopenia [Unknown]
  - Drug intolerance [Unknown]
  - Manufacturing issue [Unknown]
  - Pleural effusion [Unknown]
  - Thrombocytopenia [Unknown]
  - Treatment failure [Unknown]
